FAERS Safety Report 13891066 (Version 5)
Quarter: 2017Q3

REPORT INFORMATION
  Report Type: Report from Study
  Country: CN (occurrence: CN)
  Receive Date: 20170822
  Receipt Date: 20170911
  Transmission Date: 20171127
  Serious: Yes (Hospitalization)
  Sender: FDA-Public Use
  Company Number: PHHY2017CN046307

PATIENT
  Age: 45 Year
  Sex: Male
  Weight: 56 kg

DRUGS (34)
  1. MYFORTIC [Suspect]
     Active Substance: MYCOPHENOLATE SODIUM
     Indication: RENAL TRANSPLANT
     Dosage: 720 MG, BID
     Route: 048
     Dates: start: 20160506, end: 20160513
  2. CICLOSPORIN [Suspect]
     Active Substance: CYCLOSPORINE
     Indication: PROPHYLAXIS AGAINST TRANSPLANT REJECTION
     Dosage: 350 MG, QD
     Route: 065
     Dates: start: 20160513, end: 20160613
  3. AMANTADINE COMPOUND [Concomitant]
     Indication: PROPHYLAXIS
     Dosage: 2 DF (CAPSULE), TID
     Route: 048
     Dates: start: 20160610, end: 20160625
  4. PANTOPRAZOLE [Concomitant]
     Active Substance: PANTOPRAZOLE
     Indication: PROPHYLAXIS
     Dosage: 20 MG, QD
     Route: 048
     Dates: start: 20160522, end: 20160612
  5. BASILIXIMAB [Suspect]
     Active Substance: BASILIXIMAB
     Indication: RENAL TRANSPLANT
     Dosage: 20 MG, QD
     Route: 065
     Dates: start: 20160506, end: 20160506
  6. BASILIXIMAB [Suspect]
     Active Substance: BASILIXIMAB
     Indication: IMMUNOSUPPRESSANT DRUG THERAPY
     Dosage: 20 MG, QD
     Route: 065
     Dates: start: 20160510, end: 20160510
  7. METHYLPREDNISOLONE. [Suspect]
     Active Substance: METHYLPREDNISOLONE
     Dosage: 500 MG, QD
     Route: 065
     Dates: start: 20160507, end: 20160509
  8. PANTOPRAZOLE SODIUM. [Concomitant]
     Active Substance: PANTOPRAZOLE SODIUM
     Indication: PROPHYLAXIS
     Dosage: 40 MG, ST
     Route: 042
     Dates: start: 20160506, end: 20160509
  9. AMBROXOL [Concomitant]
     Active Substance: AMBROXOL
     Indication: PRODUCTIVE COUGH
  10. PREDNISONE. [Suspect]
     Active Substance: PREDNISONE
     Dosage: 5 MG, QD
     Route: 065
     Dates: start: 20160614
  11. AMLODIPIN BESYLATE AND BENAZEPRIL HYDROCHLORI [Concomitant]
     Active Substance: AMLODIPINE BESYLATE\BENAZEPRIL HYDROCHLORIDE
     Indication: HYPERTENSION
     Dosage: 12.5 MG, BID
     Route: 048
     Dates: start: 20160509
  12. NIFEDIPINE. [Concomitant]
     Active Substance: NIFEDIPINE
     Indication: BLOOD PRESSURE INCREASED
     Dosage: 10 MG, ST
     Route: 048
     Dates: start: 20160510, end: 20160510
  13. OLMESARTAN [Concomitant]
     Active Substance: OLMESARTAN
     Indication: HYPERTENSION
     Dosage: 20 MG, BID
     Route: 048
     Dates: start: 20160509
  14. PIPERACILIN/TAZOBACTAM [Concomitant]
     Active Substance: PIPERACILLIN SODIUM\TAZOBACTAM SODIUM
     Indication: INFECTION PROPHYLAXIS
     Dosage: 2.25 MG, BID
     Route: 042
     Dates: start: 20160506, end: 20160513
  15. AMBROXOL [Concomitant]
     Active Substance: AMBROXOL
     Indication: COUGH
     Dosage: 30 MG, BID
     Route: 042
     Dates: start: 20160506, end: 20160513
  16. CICLOSPORIN [Suspect]
     Active Substance: CYCLOSPORINE
     Indication: RENAL TRANSPLANT
     Dosage: 300 MG, QD
     Route: 065
     Dates: start: 20160507, end: 20160512
  17. FUROSEMIDE. [Concomitant]
     Active Substance: FUROSEMIDE
     Indication: POLYURIA
     Dosage: 40 MG, ST
     Route: 042
     Dates: start: 20160507, end: 20160509
  18. PANTOPRAZOLE SODIUM. [Concomitant]
     Active Substance: PANTOPRAZOLE SODIUM
     Dosage: 40 MG, QD
     Route: 042
     Dates: start: 20160506, end: 20160513
  19. SMECTITE [Concomitant]
     Active Substance: MONTMORILLONITE
     Indication: PROPHYLAXIS
     Dosage: 3 G, TID
     Route: 048
     Dates: start: 20160510, end: 20160511
  20. CICLOSPORIN [Suspect]
     Active Substance: CYCLOSPORINE
     Dosage: 300 MG, QD
     Route: 065
     Dates: start: 20160727
  21. PREDNISONE. [Suspect]
     Active Substance: PREDNISONE
     Indication: IMMUNOSUPPRESSANT DRUG THERAPY
     Dosage: 15 MG, QD
     Route: 065
     Dates: start: 20160523, end: 20160613
  22. ALPRAZOLAM. [Concomitant]
     Active Substance: ALPRAZOLAM
     Indication: INSOMNIA
     Dosage: 0.4 MG, ST
     Route: 048
     Dates: start: 20160514, end: 20160515
  23. ALPROSTADIL. [Concomitant]
     Active Substance: ALPROSTADIL
     Indication: CARDIOVASCULAR DISORDER
     Dosage: 10 UG, BID
     Route: 042
     Dates: start: 20160506, end: 20160513
  24. DILTIAZEM HYDROCHLORIDE. [Concomitant]
     Active Substance: DILTIAZEM HYDROCHLORIDE
     Indication: BLOOD PRESSURE INCREASED
     Dosage: 50 MG, ST
     Route: 042
     Dates: start: 20160506, end: 20160506
  25. MEGLUMINE ADENOSINE CYCLOPHOSPHATE [Concomitant]
     Indication: CARDIOMYOPATHY
     Dosage: 90 MG, QD
     Route: 042
     Dates: start: 20160506, end: 20160513
  26. POTASSIUM CHLORIDE. [Concomitant]
     Active Substance: POTASSIUM CHLORIDE
     Indication: PRODUCT USED FOR UNKNOWN INDICATION
     Dosage: 30 ML, ST
     Route: 042
     Dates: start: 20160508, end: 20160509
  27. BICYCLOL [Concomitant]
     Active Substance: BICYCLOL
     Indication: PROPHYLAXIS
     Dosage: 25 MG, TID
     Route: 048
     Dates: start: 20160508
  28. CICLOSPORIN [Suspect]
     Active Substance: CYCLOSPORINE
     Indication: IMMUNOSUPPRESSANT DRUG THERAPY
     Dosage: 350 MG, QD
     Route: 065
     Dates: start: 20160614, end: 20160726
  29. METHYLPREDNISOLONE. [Suspect]
     Active Substance: METHYLPREDNISOLONE
     Indication: IMMUNOSUPPRESSANT DRUG THERAPY
     Dosage: 500 MG, QD
     Route: 065
     Dates: start: 20160506, end: 20160509
  30. MYFORTIC [Suspect]
     Active Substance: MYCOPHENOLATE SODIUM
     Indication: IMMUNOSUPPRESSANT DRUG THERAPY
     Dosage: 540 MG, BID
     Route: 048
     Dates: start: 20160514
  31. PREDNISONE. [Suspect]
     Active Substance: PREDNISONE
     Indication: PROPHYLAXIS AGAINST TRANSPLANT REJECTION
     Dosage: 20 MG, QD
     Route: 065
     Dates: start: 20160509, end: 20160522
  32. GANCICLOVIR. [Concomitant]
     Active Substance: GANCICLOVIR
     Indication: INFECTION PROPHYLAXIS
     Dosage: 250 MG, QD
     Route: 042
     Dates: start: 20160516, end: 20160529
  33. METOPROLOL. [Concomitant]
     Active Substance: METOPROLOL
     Indication: BLOOD PRESSURE INCREASED
     Dosage: 12.5 MG, BID
     Route: 048
     Dates: start: 20160525
  34. GLUTATHIONE [Concomitant]
     Active Substance: GLUTATHIONE
     Indication: PROPHYLAXIS
     Dosage: 1.8 G, QD
     Route: 042
     Dates: start: 20160506, end: 20160513

REACTIONS (12)
  - Hydronephrosis [Recovered/Resolved with Sequelae]
  - Dyspepsia [Recovering/Resolving]
  - Incision site pain [Recovering/Resolving]
  - Diarrhoea [Recovering/Resolving]
  - Blood creatinine increased [Recovering/Resolving]
  - Haemoglobin decreased [Unknown]
  - Procedural pain [Recovered/Resolved with Sequelae]
  - Pyrexia [Recovering/Resolving]
  - Ureteric stenosis [Recovered/Resolved]
  - Red blood cells urine positive [Unknown]
  - Nausea [Recovered/Resolved]
  - Productive cough [Recovering/Resolving]

NARRATIVE: CASE EVENT DATE: 20160507
